FAERS Safety Report 6698964-9 (Version None)
Quarter: 2010Q2

REPORT INFORMATION
  Report Type: 
  Country: None (occurrence: None)
  Receive Date: 20100427
  Receipt Date: 20100420
  Transmission Date: 20101027
  Serious: Yes (Hospitalization, Other)
  Sender: FDA-Public Use
  Company Number: B0643299A

PATIENT
  Age: 18 Year
  Sex: Female

DRUGS (5)
  1. ATARAX [Suspect]
     Indication: PAIN
     Dosage: 25MG THREE TIMES PER DAY
     Route: 042
     Dates: start: 20091215, end: 20100311
  2. ZOVIRAX [Suspect]
     Indication: ANTIVIRAL PROPHYLAXIS
     Dosage: 200MG PER DAY
     Route: 048
     Dates: start: 20100126
  3. SANDIMMUNE [Suspect]
     Indication: GRAFT VERSUS HOST DISEASE
     Dosage: 120MG PER DAY
     Route: 042
     Dates: start: 20091221, end: 20100123
  4. MEROPEN [Suspect]
     Indication: INFECTION
     Dosage: 2G TWICE PER DAY
     Route: 042
     Dates: start: 20091221, end: 20100224
  5. AMPHOTERICIN B [Suspect]
     Indication: INFECTION
     Dosage: 50MG PER DAY
     Route: 042
     Dates: start: 20091128, end: 20100305

REACTIONS (1)
  - PERSONALITY CHANGE [None]
